FAERS Safety Report 6851377-9 (Version None)
Quarter: 2010Q3

REPORT INFORMATION
  Report Type: 
  Country: None (occurrence: None)
  Receive Date: 20100717
  Receipt Date: 20080116
  Transmission Date: 20110219
  Serious: Yes (Other)
  Sender: FDA-Public Use
  Company Number: US-PFIZER INC-2008006499

PATIENT
  Sex: Male
  Weight: 90.909 kg

DRUGS (7)
  1. CHANTIX [Suspect]
     Indication: SMOKING CESSATION THERAPY
     Dosage: EVERY DAY
     Dates: start: 20080110
  2. NEXIUM [Concomitant]
  3. ZETIA [Concomitant]
  4. CELEBREX [Concomitant]
  5. CELEXA [Concomitant]
  6. PERCOCET [Concomitant]
  7. OXYCONTIN [Concomitant]

REACTIONS (2)
  - CARDIAC FLUTTER [None]
  - EXTRASYSTOLES [None]
